FAERS Safety Report 17995248 (Version 1)
Quarter: 2020Q3

REPORT INFORMATION
  Report Type: Spontaneous
  Country: US (occurrence: US)
  Receive Date: 20200708
  Receipt Date: 20200708
  Transmission Date: 20201103
  Serious: Yes (Other)
  Sender: FDA-Public Use
  Company Number: None

PATIENT
  Age: 67 Year
  Sex: Female
  Weight: 56.25 kg

DRUGS (6)
  1. LATANOPROST. [Concomitant]
     Active Substance: LATANOPROST
  2. BIOTIN [Concomitant]
     Active Substance: BIOTIN
  3. CALCIUM [Concomitant]
     Active Substance: CALCIUM
  4. MAGNESIUM [Concomitant]
     Active Substance: MAGNESIUM
  5. DORZOL/TIMOL PF SOL 2%?0.5% [Suspect]
     Active Substance: DORZOLAMIDE HYDROCHLORIDE\TIMOLOL MALEATE
     Indication: GLAUCOMA
     Dosage: ?          QUANTITY:180 DROP(S);?
     Route: 047
     Dates: start: 20200629, end: 20200630
  6. AREDS II [Concomitant]

REACTIONS (5)
  - Erythema [None]
  - Eyelid margin crusting [None]
  - Instillation site pain [None]
  - Chemical burn of skin [None]
  - Instillation site pruritus [None]

NARRATIVE: CASE EVENT DATE: 20200701
